FAERS Safety Report 9304065 (Version 1)
Quarter: 2013Q2

REPORT INFORMATION
  Report Type: Spontaneous
  Country: US (occurrence: US)
  Receive Date: 20130522
  Receipt Date: 20130522
  Transmission Date: 20140414
  Serious: No
  Sender: FDA-Public Use
  Company Number: US-BAYER-2013-059528

PATIENT
  Age: 69 Year
  Sex: Male

DRUGS (2)
  1. FINACEA [Suspect]
     Indication: ACNE
     Dosage: UNK
     Route: 061
     Dates: start: 20130430
  2. FINACEA [Suspect]
     Indication: ROSACEA

REACTIONS (3)
  - Acne pustular [Not Recovered/Not Resolved]
  - Expired drug administered [None]
  - Pre-existing condition improved [None]
